FAERS Safety Report 8813902 (Version 2)
Quarter: 2013Q1

REPORT INFORMATION
  Report Type: Spontaneous
  Country: US (occurrence: US)
  Receive Date: 20120928
  Receipt Date: 20130322
  Transmission Date: 20140127
  Serious: Yes (Death)
  Sender: FDA-Public Use
  Company Number: US-ROCHE-1104302

PATIENT
  Sex: Female

DRUGS (2)
  1. HERCEPTIN [Suspect]
     Indication: BREAST CANCER FEMALE
     Dosage: TWO DOSE
     Route: 065
  2. HERCEPTIN [Suspect]
     Indication: BRAIN NEOPLASM MALIGNANT

REACTIONS (1)
  - Death [Fatal]
